FAERS Safety Report 9287827 (Version 2)
Quarter: 2013Q3

REPORT INFORMATION
  Report Type: Spontaneous
  Country: US (occurrence: US)
  Receive Date: 20130514
  Receipt Date: 20130705
  Transmission Date: 20140515
  Serious: Yes (Death)
  Sender: FDA-Public Use
  Company Number: US-AMGEN-USASP2013033477

PATIENT
  Age: 86 Year
  Sex: Female
  Weight: 59.86 kg

DRUGS (8)
  1. PROLIA [Suspect]
     Indication: OSTEOPOROSIS
     Dosage: 60 MG, Q6MO
     Route: 058
     Dates: start: 20100824, end: 20120827
  2. WARFARIN [Concomitant]
     Indication: CARDIAC DISORDER
     Dosage: 5 UNK, QD
     Route: 048
  3. DIGITEK [Concomitant]
     Indication: CARDIAC DISORDER
     Dosage: 125 MUG, UNK
     Route: 048
  4. FLEXERIL                           /00428402/ [Concomitant]
     Dosage: 10 MG, TID
  5. AVAPRO [Concomitant]
  6. PRAVASTATIN [Concomitant]
     Indication: HYPERLIPIDAEMIA
     Dosage: 80 MG, QD
     Route: 048
  7. FUROSEMIDE [Concomitant]
     Dosage: 40 MG, QD
     Route: 048
  8. ADVAIR [Concomitant]
     Dosage: 500 TO 50 MG BID
     Route: 045

REACTIONS (1)
  - Death [Fatal]
